FAERS Safety Report 8048289-4 (Version None)
Quarter: 2011Q4

REPORT INFORMATION
  Report Type: 
  Country: None (occurrence: None)
  Receive Date: 20111209
  Receipt Date: 20110919
  Transmission Date: 20120403
  Serious: No
  Sender: FDA-Public Use
  Company Number: 2011SP044234

PATIENT
  Sex: Male

DRUGS (2)
  1. VICTRELIS [Suspect]
     Indication: HEPATITIS C
     Dosage: 800 MG;TID; PO
     Route: 048
  2. PEGASYS [Suspect]
     Indication: HEPATITIS C

REACTIONS (2)
  - HEADACHE [None]
  - FEELING ABNORMAL [None]
